FAERS Safety Report 10488796 (Version 1)
Quarter: 2014Q4

REPORT INFORMATION
  Report Type: Spontaneous
  Country: GB (occurrence: GB)
  Receive Date: 20141002
  Receipt Date: 20141002
  Transmission Date: 20150528
  Serious: Yes (Other)
  Sender: FDA-Public Use
  Company Number: GB-TEVA-511130ISR

PATIENT
  Age: 68 Year
  Sex: Male
  Weight: 85 kg

DRUGS (4)
  1. STALEVO [Concomitant]
     Active Substance: CARBIDOPA\ENTACAPONE\LEVODOPA
     Dosage: 5 DOSAGE FORMS DAILY; 125 MG/31.25 MG/200 MG. ONGOING.
     Route: 048
     Dates: start: 20130514
  2. PARACETAMOL [Concomitant]
     Active Substance: ACETAMINOPHEN
     Dosage: 2 FOUR TIMES DAILY AS REQUIRED. ONGOING.
     Route: 048
     Dates: start: 20100929
  3. TRIMETHOPRIM. [Suspect]
     Active Substance: TRIMETHOPRIM
     Dosage: 400 MILLIGRAM DAILY;
     Route: 048
     Dates: start: 20140901, end: 20140902
  4. ROPINIROLE. [Concomitant]
     Active Substance: ROPINIROLE
     Dosage: 8 MILLIGRAM DAILY; TAKEN AT NIGHT. ONGOING. MODIFIED RELEASED TABLET
     Route: 048
     Dates: start: 20130514

REACTIONS (1)
  - Diplopia [Recovered/Resolved]

NARRATIVE: CASE EVENT DATE: 20140902
